FAERS Safety Report 8571300 (Version 9)
Quarter: 2012Q4

REPORT INFORMATION
  Report Type: Report from Study
  Country: CA (occurrence: CA)
  Receive Date: 20120521
  Receipt Date: 20121010
  Transmission Date: 20130627
  Serious: Yes (Other)
  Sender: FDA-Public Use
  Company Number: CA-ROCHE-1068288

PATIENT
  Age: 67 None
  Sex: Male
  Weight: 79.45 kg

DRUGS (6)
  1. AVASTIN [Suspect]
     Indication: GLIOBLASTOMA
     Route: 042
     Dates: start: 20111129, end: 20120727
  2. AVASTIN [Suspect]
     Route: 042
     Dates: start: 20120515
  3. AVASTIN [Suspect]
     Route: 065
     Dates: start: 20120626
  4. AVASTIN [Suspect]
     Route: 065
     Dates: start: 20120529
  5. AVASTIN [Suspect]
     Route: 065
  6. CRESTOR [Concomitant]

REACTIONS (20)
  - Neoplasm [Not Recovered/Not Resolved]
  - Balance disorder [Not Recovered/Not Resolved]
  - Heart rate decreased [Not Recovered/Not Resolved]
  - Gait disturbance [Not Recovered/Not Resolved]
  - Movement disorder [Not Recovered/Not Resolved]
  - Aphasia [Not Recovered/Not Resolved]
  - Platelet count decreased [Not Recovered/Not Resolved]
  - Cough [Not Recovered/Not Resolved]
  - Epistaxis [Recovered/Resolved]
  - Blood urea increased [Unknown]
  - Blood sodium decreased [Unknown]
  - Neutrophil count increased [Unknown]
  - Anion gap decreased [Unknown]
  - Blood bicarbonate increased [Unknown]
  - Red blood cell count decreased [Unknown]
  - Mean cell haemoglobin increased [Unknown]
  - Lymphocyte count decreased [Unknown]
  - Macrocytosis [Unknown]
  - Terminal state [Not Recovered/Not Resolved]
  - Cyst [Recovered/Resolved]
